FAERS Safety Report 9235411 (Version 2)
Quarter: 2013Q2

REPORT INFORMATION
  Report Type: Spontaneous
  Country: US (occurrence: US)
  Receive Date: 20130417
  Receipt Date: 20130508
  Transmission Date: 20140414
  Serious: No
  Sender: FDA-Public Use
  Company Number: US-009507513-1304USA006519

PATIENT
  Sex: Female

DRUGS (6)
  1. NASONEX [Suspect]
     Indication: HYPERSENSITIVITY
     Dosage: UNK
     Route: 045
     Dates: start: 20121028
  2. SINGULAIR [Concomitant]
     Route: 048
  3. ADVAIR [Concomitant]
  4. CLARITIN-D [Concomitant]
     Route: 048
  5. LEVOTHYROXINE SODIUM [Concomitant]
  6. PROZAC [Concomitant]

REACTIONS (3)
  - Hypersensitivity [Not Recovered/Not Resolved]
  - Product container issue [Unknown]
  - Drug dose omission [Unknown]
